FAERS Safety Report 10989426 (Version 3)
Quarter: 2015Q2

REPORT INFORMATION
  Report Type: Spontaneous
  Country: US (occurrence: US)
  Receive Date: 20150406
  Receipt Date: 20150513
  Transmission Date: 20150821
  Serious: Yes (Other)
  Sender: FDA-Public Use
  Company Number: US-PFIZER INC-2015116097

PATIENT
  Age: 66 Year
  Sex: Male
  Weight: 79.37 kg

DRUGS (6)
  1. SUTENT [Suspect]
     Active Substance: SUNITINIB MALATE
     Indication: METASTATIC RENAL CELL CARCINOMA
     Dosage: 50 MG, DAILY, 28 DAYS ON/ 14 DAYS OFF
     Dates: start: 20150324
  2. LINZESS [Concomitant]
     Active Substance: LINACLOTIDE
     Dosage: UNK
  3. AMLODIPINE BESYLATE. [Concomitant]
     Active Substance: AMLODIPINE BESYLATE
     Dosage: UNK
  4. PANTOPRAZOLE [Concomitant]
     Active Substance: PANTOPRAZOLE SODIUM
     Dosage: UNK
  5. LOSARTAN [Concomitant]
     Active Substance: LOSARTAN
     Dosage: UNK
  6. SIMVASTATIN. [Concomitant]
     Active Substance: SIMVASTATIN
     Dosage: UNK

REACTIONS (11)
  - Blood pressure increased [Unknown]
  - Platelet count decreased [Unknown]
  - Hyperhidrosis [Unknown]
  - Lethargy [Unknown]
  - Decreased appetite [Unknown]
  - Dysgeusia [Unknown]
  - Fatigue [Unknown]
  - Haemorrhage [Unknown]
  - Chromaturia [Unknown]
  - Night sweats [Unknown]
  - Chills [Unknown]

NARRATIVE: CASE EVENT DATE: 201503
